FAERS Safety Report 6538251-2 (Version None)
Quarter: 2010Q1

REPORT INFORMATION
  Report Type: 
  Country: None (occurrence: None)
  Receive Date: 20100114
  Receipt Date: 20100114
  Transmission Date: 20100710
  Serious: Yes (Death)
  Sender: FDA-Public Use
  Company Number: US-B.I. PHARMACEUTICALS,INC./RIDGEFIELD-2009-BP-12840BP

PATIENT
  Sex: Male

DRUGS (7)
  1. SPIRIVA [Suspect]
     Dosage: 18 MCG
  2. DILTIAZEM [Concomitant]
  3. LASIX [Concomitant]
     Dosage: 40 MG
  4. GLUCOPHAGE [Concomitant]
     Dosage: 1000 MG
  5. PRILOSEC [Concomitant]
     Dosage: 40 MG
  6. ALBUTEROL [Concomitant]
  7. ACTOS [Concomitant]
     Dosage: 15 MG

REACTIONS (1)
  - DEATH [None]
